FAERS Safety Report 7078626-9 (Version None)
Quarter: 2010Q4

REPORT INFORMATION
  Report Type: 
  Country: None (occurrence: None)
  Receive Date: 20101102
  Receipt Date: 20101026
  Transmission Date: 20110411
  Serious: Yes (Other)
  Sender: FDA-Public Use
  Company Number: CO-ELI_LILLY_AND_COMPANY-CO201006005269

PATIENT
  Age: 69 Year
  Sex: Female

DRUGS (13)
  1. BYETTA [Suspect]
     Indication: TYPE 2 DIABETES MELLITUS
     Dosage: 5 UG, DAILY (1/D)
     Route: 058
     Dates: start: 20100609
  2. BYETTA [Suspect]
     Dosage: 10 UG, DAILY (1/D)
     Dates: start: 20100821
  3. BYETTA [Suspect]
     Dosage: 10 UG, 2/D
  4. BYETTA [Suspect]
     Dosage: 5 UG, 2/D
  5. METFORMIN [Concomitant]
     Route: 048
  6. GABAPENTIN [Concomitant]
  7. LEVOTHYROXINE SODIUM [Concomitant]
  8. VITAMIN B COMPLEX CAP [Concomitant]
  9. LOVAZA [Concomitant]
  10. ASPIRIN [Concomitant]
  11. PREDNISOLONE [Concomitant]
  12. NPH INSULIN [Concomitant]
  13. CIPROFLOXACIN [Concomitant]

REACTIONS (10)
  - ALANINE AMINOTRANSFERASE INCREASED [None]
  - ANXIETY [None]
  - ASPARTATE AMINOTRANSFERASE INCREASED [None]
  - BLOOD CREATINE PHOSPHOKINASE INCREASED [None]
  - DISCOMFORT [None]
  - DIZZINESS [None]
  - FEELING COLD [None]
  - NAUSEA [None]
  - OFF LABEL USE [None]
  - VOMITING [None]
